FAERS Safety Report 5691800-9 (Version None)
Quarter: 2008Q2

REPORT INFORMATION
  Report Type: 
  Country: None (occurrence: None)
  Receive Date: 20080402
  Receipt Date: 20080325
  Transmission Date: 20081010
  Serious: Yes (Hospitalization)
  Sender: FDA-Public Use
  Company Number: CH-BRISTOL-MYERS SQUIBB COMPANY-14132542

PATIENT
  Age: 61 Year
  Sex: Male
  Weight: 85 kg

DRUGS (4)
  1. GLUCOPHAGE [Suspect]
     Route: 048
     Dates: start: 20040101, end: 20071218
  2. AMARYL [Suspect]
     Route: 048
     Dates: start: 20060101, end: 20071217
  3. ACCUPRO [Suspect]
     Route: 048
     Dates: start: 20050101, end: 20071217
  4. OMEPRAZOLE [Concomitant]
     Route: 048
     Dates: start: 20071201

REACTIONS (1)
  - HEPATITIS CHOLESTATIC [None]
